FAERS Safety Report 4466988-8 (Version None)
Quarter: 2004Q3

REPORT INFORMATION
  Report Type: 
  Country: None (occurrence: None)
  Receive Date: 20040930
  Receipt Date: 20040922
  Transmission Date: 20050211
  Serious: Yes (Hospitalization)
  Sender: FDA-Public Use
  Company Number: ATO-04-0799

PATIENT
  Age: 77 Year
  Sex: Female

DRUGS (6)
  1. TRISENOX [Suspect]
     Indication: MYELODYSPLASTIC SYNDROME
     Dosage: SEE IMAGE
     Route: 042
     Dates: start: 20040816, end: 20040820
  2. TRISENOX [Suspect]
     Indication: MYELODYSPLASTIC SYNDROME
     Dosage: SEE IMAGE
     Route: 042
     Dates: start: 20040823, end: 20040825
  3. MACRODANTIN [Concomitant]
  4. ALLOPURINOL [Concomitant]
  5. COREG [Concomitant]
  6. LASIX [Concomitant]

REACTIONS (14)
  - ANAEMIA [None]
  - CARDIAC FAILURE [None]
  - CONGESTIVE CARDIOMYOPATHY [None]
  - COUGH [None]
  - DILATATION VENTRICULAR [None]
  - HEART RATE INCREASED [None]
  - HEART RATE IRREGULAR [None]
  - LUNG NEOPLASM [None]
  - MITRAL VALVE INCOMPETENCE [None]
  - PERICARDIAL EFFUSION [None]
  - PLEURAL EFFUSION [None]
  - RASH [None]
  - VENTRICULAR HYPOKINESIA [None]
  - VENTRICULAR TACHYCARDIA [None]
